FAERS Safety Report 9106636 (Version 1)
Quarter: 2013Q1

REPORT INFORMATION
  Report Type: Spontaneous
  Country: BR (occurrence: BR)
  Receive Date: 20130221
  Receipt Date: 20130221
  Transmission Date: 20140127
  Serious: Yes (Hospitalization, Other)
  Sender: FDA-Public Use
  Company Number: PHHY2012BR072399

PATIENT
  Sex: Female

DRUGS (6)
  1. DIOVAN [Suspect]
     Indication: HYPERTENSION
     Dosage: 2 DF, QD
  2. ATENOLOL [Concomitant]
     Indication: HYPERTENSION
     Dosage: 1 DF, QD
     Route: 048
  3. OMEPRAZOL [Concomitant]
  4. DIOSMIN [Concomitant]
     Indication: VEIN DISORDER
     Dosage: 1 DF, Q12H
  5. MYLANTA PLUS [Concomitant]
     Dosage: 1 TABLESPOON, DAILY
     Route: 048
  6. DIOSMIN SDU [Concomitant]
     Indication: VEIN DISORDER
     Dosage: 1 SACHET
     Route: 048
     Dates: start: 201208

REACTIONS (7)
  - Viral infection [Recovered/Resolved]
  - Pyrexia [Recovered/Resolved]
  - Chills [Recovered/Resolved]
  - Vomiting [Unknown]
  - Dysentery [Unknown]
  - Pain [Unknown]
  - Abasia [Unknown]
